FAERS Safety Report 8095520-5 (Version None)
Quarter: 2012Q1

REPORT INFORMATION
  Report Type: 
  Country: None (occurrence: None)
  Receive Date: 20120129
  Receipt Date: 20111216
  Transmission Date: 20120608
  Serious: No
  Sender: FDA-Public Use
  Company Number: US-ABBOTT-11P-163-0884364-00

PATIENT
  Age: 51 Year
  Sex: Male

DRUGS (8)
  1. HUMIRA [Suspect]
  2. ZETIA [Concomitant]
     Indication: BLOOD CHOLESTEROL
  3. METFORMIN HCL [Concomitant]
     Indication: DIABETES MELLITUS
  4. BENICAR [Concomitant]
     Indication: BLOOD PRESSURE
  5. DEXILANT [Concomitant]
     Indication: GASTRIC DISORDER
  6. HUMIRA [Suspect]
     Indication: CROHN'S DISEASE
     Dosage: (160 MG INITIAL DOSE)
     Dates: start: 20111209
  7. LEXAPRO [Concomitant]
     Indication: DEPRESSION
  8. LIPITOR [Concomitant]
     Indication: BLOOD CHOLESTEROL

REACTIONS (2)
  - GASTROINTESTINAL SOUNDS ABNORMAL [None]
  - DIARRHOEA [None]
